FAERS Safety Report 17697398 (Version 1)
Quarter: 2020Q2

REPORT INFORMATION
  Report Type: Spontaneous
  Country: US (occurrence: US)
  Receive Date: 20200422
  Receipt Date: 20200422
  Transmission Date: 20200714
  Serious: No
  Sender: FDA-Public Use
  Company Number: None

PATIENT
  Age: 55 Year
  Sex: Female

DRUGS (1)
  1. GLATIRAMER 20MG PFS INJ (30/BOX) [Suspect]
     Active Substance: GLATIRAMER
     Indication: MULTIPLE SCLEROSIS
     Route: 058
     Dates: start: 202001, end: 202004

REACTIONS (4)
  - Injection site pruritus [None]
  - Injection site bruising [None]
  - Urticaria [None]
  - Injection site reaction [None]

NARRATIVE: CASE EVENT DATE: 20200422
